FAERS Safety Report 12376403 (Version 1)
Quarter: 2016Q2

REPORT INFORMATION
  Report Type: Spontaneous
  Country: US (occurrence: None)
  Receive Date: 20160516
  Receipt Date: 20160516
  Transmission Date: 20160815
  Serious: Yes (Hospitalization)
  Sender: FDA-Public Use
  Company Number: None

PATIENT
  Age: 77 Year
  Sex: Female

DRUGS (23)
  1. LORAZEPAM. [Concomitant]
     Active Substance: LORAZEPAM
  2. CRESTOR [Concomitant]
     Active Substance: ROSUVASTATIN CALCIUM
  3. MECLIZINE [Concomitant]
     Active Substance: MECLIZINE HYDROCHLORIDE
  4. FENOFIBRATE. [Concomitant]
     Active Substance: FENOFIBRATE
  5. NITROSTAT [Concomitant]
     Active Substance: NITROGLYCERIN
  6. SENOKOT [Concomitant]
     Active Substance: SENNOSIDES
  7. NEXIUM [Concomitant]
     Active Substance: ESOMEPRAZOLE MAGNESIUM
  8. ATENOLOL. [Concomitant]
     Active Substance: ATENOLOL
  9. ISMO [Concomitant]
     Active Substance: ISOSORBIDE MONONITRATE
  10. VITAMIN D-2 [Concomitant]
  11. LEVOTHYROXINE. [Concomitant]
     Active Substance: LEVOTHYROXINE
  12. FOLPLEX [Concomitant]
     Active Substance: CHOLECALCIFEROL\CYANOCOBALAMIN CO-57\FOLIC ACID\PYRIDOXINE HYDROCHLORIDE
  13. VITAMIN B12 [Concomitant]
     Active Substance: CYANOCOBALAMIN
  14. SPRYCEL [Suspect]
     Active Substance: DASATINIB
     Indication: CHRONIC LYMPHOCYTIC LEUKAEMIA
     Route: 048
     Dates: start: 20160121, end: 20160513
  15. PAXIL [Concomitant]
     Active Substance: PAROXETINE HYDROCHLORIDE
  16. PROMETHAZINE [Concomitant]
     Active Substance: PROMETHAZINE\PROMETHAZINE HYDROCHLORIDE
  17. WARFARIN [Concomitant]
     Active Substance: WARFARIN
  18. TOPAMAX [Concomitant]
     Active Substance: TOPIRAMATE
  19. PLAVIX [Concomitant]
     Active Substance: CLOPIDOGREL BISULFATE
  20. OXYCODONE [Concomitant]
     Active Substance: OXYCODONE
  21. BACTRIM [Concomitant]
     Active Substance: SULFAMETHOXAZOLE\TRIMETHOPRIM
  22. METFORMIN [Concomitant]
     Active Substance: METFORMIN HYDROCHLORIDE
  23. CEPHALEXIN. [Concomitant]
     Active Substance: CEPHALEXIN

REACTIONS (2)
  - Neutropenia [None]
  - Pneumonia [None]

NARRATIVE: CASE EVENT DATE: 20160420
